FAERS Safety Report 17108162 (Version 1)
Quarter: 2019Q4

REPORT INFORMATION
  Report Type: Spontaneous
  Country: US (occurrence: US)
  Receive Date: 20191204
  Receipt Date: 20191204
  Transmission Date: 20200122
  Serious: No
  Sender: FDA-Public Use
  Company Number: US-UCBSA-2017046713

PATIENT
  Sex: Male
  Weight: 16 kg

DRUGS (7)
  1. VIMPAT [Suspect]
     Active Substance: LACOSAMIDE
     Dosage: 6 ML, 2X/DAY (BID)
     Dates: start: 2017, end: 2017
  2. VIMPAT [Suspect]
     Active Substance: LACOSAMIDE
     Dosage: 4 ML, 2X/DAY (BID)
     Dates: start: 201711, end: 20171109
  3. VIMPAT [Suspect]
     Active Substance: LACOSAMIDE
     Dosage: 3 ML, 2X/DAY (BID)
     Dates: start: 2017, end: 2017
  4. LEVETIRACETAM. [Concomitant]
     Active Substance: LEVETIRACETAM
     Dosage: UNK
     Dates: start: 201711
  5. VIMPAT [Suspect]
     Active Substance: LACOSAMIDE
     Dosage: 4 ML, 2X/DAY (BID)
     Dates: start: 2017, end: 2017
  6. VIMPAT [Suspect]
     Active Substance: LACOSAMIDE
     Indication: SEIZURE
     Dosage: 1.5 ML, 2X/DAY (BID)
     Dates: start: 2017, end: 2017
  7. LEVETIRACETAM. [Concomitant]
     Active Substance: LEVETIRACETAM
     Indication: PRODUCT USED FOR UNKNOWN INDICATION
     Dosage: 2.5 ML, 2X/DAY (BID)
     Dates: start: 201704, end: 2017

REACTIONS (2)
  - Change in seizure presentation [Not Recovered/Not Resolved]
  - Off label use [Unknown]

NARRATIVE: CASE EVENT DATE: 2017
